FAERS Safety Report 24971507 (Version 1)
Quarter: 2025Q1

REPORT INFORMATION
  Report Type: Spontaneous
  Country: GB (occurrence: GB)
  Receive Date: 20250214
  Receipt Date: 20250214
  Transmission Date: 20250409
  Serious: Yes (Life-Threatening, Hospitalization, Other)
  Sender: PFIZER
  Company Number: None

PATIENT
  Age: 63 Year
  Sex: Female
  Weight: 118 kg

DRUGS (11)
  1. DALTEPARIN SODIUM [Suspect]
     Active Substance: DALTEPARIN SODIUM
     Indication: Thrombosis prophylaxis
  2. WARFARIN [Suspect]
     Active Substance: WARFARIN
     Indication: Atrial septal defect repair
  3. AMLODIPINE [Concomitant]
     Active Substance: AMLODIPINE BESYLATE
  4. BECLOMETHASONE DIPROPIONATE\FORMOTEROL FUMARATE\GLYCOPYRROLATE [Concomitant]
     Active Substance: BECLOMETHASONE DIPROPIONATE\FORMOTEROL FUMARATE\GLYCOPYRROLATE
  5. GABAPENTIN [Concomitant]
     Active Substance: GABAPENTIN
  6. NITROFURANTOIN [Concomitant]
     Active Substance: NITROFURANTOIN
  7. OXYCODONE [Concomitant]
     Active Substance: OXYCODONE
  8. ACETAMINOPHEN [Concomitant]
     Active Substance: ACETAMINOPHEN
  9. ROPINIROLE [Concomitant]
     Active Substance: ROPINIROLE
  10. ALBUTEROL [Concomitant]
     Active Substance: ALBUTEROL
  11. SENNA LEAF [Concomitant]
     Active Substance: SENNA LEAF

REACTIONS (3)
  - Haemorrhage [Recovered/Resolved]
  - Arterial haemorrhage [Recovered/Resolved]
  - Subcutaneous haematoma [Recovered/Resolved]

NARRATIVE: CASE EVENT DATE: 20250207
